FAERS Safety Report 6593769-1 (Version None)
Quarter: 2010Q1

REPORT INFORMATION
  Report Type: 
  Country: None (occurrence: None)
  Receive Date: 20100212
  Receipt Date: 20100201
  Transmission Date: 20100710
  Serious: Yes (Life-Threatening, Hospitalization)
  Sender: FDA-Public Use
  Company Number: 2010SP006393

PATIENT
  Age: 94 Year
  Sex: Male

DRUGS (10)
  1. REMERON [Suspect]
     Indication: DECREASED APPETITE
     Dosage: 15 MG;ONCE;PO
     Route: 048
     Dates: start: 20100127, end: 20100127
  2. REMERON [Suspect]
     Indication: DEPRESSION
     Dosage: 15 MG;ONCE;PO
     Route: 048
     Dates: start: 20100127, end: 20100127
  3. URIEF (SILODOSIN) (ALPHA-ADRENORECEPTOR ANTAGONISTS) [Suspect]
     Indication: DRUG USE FOR UNKNOWN INDICATION
     Dosage: 2 DF; ;PO
     Route: 048
     Dates: start: 20100127, end: 20100128
  4. PARIET [Concomitant]
  5. YODEL S [Concomitant]
  6. DIART [Concomitant]
  7. MUCOSTA [Concomitant]
  8. MASHI-NIN-GAN [Concomitant]
  9. RIJJUNSHI-TO [Concomitant]
  10. POSTERISAN [Concomitant]

REACTIONS (6)
  - ALANINE AMINOTRANSFERASE INCREASED [None]
  - ALTERED STATE OF CONSCIOUSNESS [None]
  - ASPARTATE AMINOTRANSFERASE INCREASED [None]
  - BLOOD ALKALINE PHOSPHATASE INCREASED [None]
  - HEPATIC FUNCTION ABNORMAL [None]
  - MALAISE [None]
